FAERS Safety Report 6848552-6 (Version None)
Quarter: 2010Q3

REPORT INFORMATION
  Report Type: 
  Country: None (occurrence: None)
  Receive Date: 20100716
  Receipt Date: 20100709
  Transmission Date: 20110219
  Serious: Yes (Hospitalization, Other)
  Sender: FDA-Public Use
  Company Number: JP-PFIZER INC-2010080151

PATIENT
  Age: 68 Year
  Sex: Male
  Weight: 60 kg

DRUGS (4)
  1. LOMEFLOXACIN HYDROCHLORIDE [Suspect]
     Indication: GASTROENTERITIS
     Dosage: 100 MG, 3X/DAY
     Route: 048
     Dates: start: 20091021, end: 20091026
  2. LEBENIN [Suspect]
     Indication: GASTROENTERITIS
     Dosage: 1 G, 3X/DAY
     Route: 048
     Dates: start: 20091021, end: 20091026
  3. NAUZELIN [Suspect]
     Indication: GASTROENTERITIS
     Dosage: 10 MG, 3X/DAY
     Route: 048
     Dates: start: 20091021, end: 20091026
  4. DRUG, UNSPECIFIED [Concomitant]
     Indication: GASTROENTERITIS
     Dosage: UNK (1 IN 1D)
     Route: 042
     Dates: start: 20091021, end: 20091026

REACTIONS (1)
  - RENAL FAILURE ACUTE [None]
